FAERS Safety Report 18731677 (Version 2)
Quarter: 2021Q1

REPORT INFORMATION
  Report Type: Spontaneous
  Country: US (occurrence: US)
  Receive Date: 20210112
  Receipt Date: 20210127
  Transmission Date: 20210419
  Serious: Yes (Hospitalization, Other)
  Sender: FDA-Public Use
  Company Number: US-AMGEN-USASP2021002027

PATIENT
  Age: 71 Year
  Sex: Female
  Weight: 80.56 kg

DRUGS (6)
  1. PROLIA [Suspect]
     Active Substance: DENOSUMAB
     Indication: OSTEOPENIA
     Dosage: 60 MILLIGRAM, Q6MO
     Route: 058
     Dates: start: 2017, end: 20210108
  2. PROLIA [Suspect]
     Active Substance: DENOSUMAB
     Indication: OSTEOPOROSIS
  3. VICODIN [Concomitant]
     Active Substance: ACETAMINOPHEN\HYDROCODONE BITARTRATE
     Dosage: 5 MG?300 MG
     Dates: start: 20140910
  4. TRAMADOL. [Concomitant]
     Active Substance: TRAMADOL
     Dosage: 50 MILLIGRAM, QD
     Route: 048
     Dates: start: 20141020
  5. HYDROXYZINE HYDROCHLORIDE. [Concomitant]
     Active Substance: HYDROXYZINE HYDROCHLORIDE
     Dosage: 10 MILLIGRAM
     Dates: start: 20140625
  6. LUMIGAN [Concomitant]
     Active Substance: BIMATOPROST
     Dosage: UNK
     Dates: start: 20141010

REACTIONS (16)
  - Tooth extraction [Unknown]
  - Upper respiratory tract infection [Unknown]
  - Abdominal hernia [Unknown]
  - Dental implantation [Unknown]
  - Diverticulitis [Unknown]
  - Vertigo positional [Unknown]
  - Bundle branch block right [Unknown]
  - Metabolic surgery [Unknown]
  - Impaired healing [Not Recovered/Not Resolved]
  - Supraventricular tachycardia [Unknown]
  - Anaemia [Unknown]
  - Cough [Unknown]
  - Dyspnoea [Unknown]
  - Exostosis of jaw [Unknown]
  - Vitamin D deficiency [Unknown]
  - Gastrooesophageal reflux disease [Unknown]

NARRATIVE: CASE EVENT DATE: 20180327
